FAERS Safety Report 9325933 (Version 3)
Quarter: 2013Q2

REPORT INFORMATION
  Report Type: Spontaneous
  Country: DE (occurrence: DE)
  Receive Date: 20130604
  Receipt Date: 20130613
  Transmission Date: 20140414
  Serious: Yes (Other)
  Sender: FDA-Public Use
  Company Number: DE-PFIZER INC-2013164155

PATIENT
  Sex: Male

DRUGS (1)
  1. GENOTROPIN [Suspect]
     Indication: HYPOPITUITARISM
     Dosage: UNK

REACTIONS (3)
  - Craniopharyngioma [Recovered/Resolved]
  - Disease recurrence [Recovered/Resolved]
  - Pituitary tumour benign [Unknown]
